FAERS Safety Report 5498491-0 (Version None)
Quarter: 2007Q4

REPORT INFORMATION
  Report Type: 
  Country: None (occurrence: None)
  Receive Date: 20071024
  Receipt Date: 20071024
  Transmission Date: 20080405
  Serious: Yes (Hospitalization)
  Sender: FDA-Public Use
  Company Number: None

PATIENT
  Sex: Female
  Weight: 55.3388 kg

DRUGS (13)
  1. HUMIRA [Suspect]
     Indication: RHEUMATOID ARTHRITIS
     Dosage: 40MG EVERY 3-4 WEEKS SQ
     Route: 058
     Dates: start: 20041201
  2. PREDNISONE [Concomitant]
  3. PLAQUENIL [Concomitant]
  4. FELDANE [Concomitant]
  5. SYNTHROID [Concomitant]
  6. DIGOXIN [Concomitant]
  7. TRAZODONE HCL [Concomitant]
  8. WELLBUTRIN [Concomitant]
  9. ZOCOR [Concomitant]
  10. ZETIA [Concomitant]
  11. ASPIRIN [Concomitant]
  12. NIACIN [Concomitant]
  13. EVOXAC [Concomitant]

REACTIONS (1)
  - STAPHYLOCOCCAL INFECTION [None]
